FAERS Safety Report 7064067-7 (Version None)
Quarter: 2010Q4

REPORT INFORMATION
  Report Type: 
  Country: None (occurrence: None)
  Receive Date: 20101027
  Receipt Date: 20101018
  Transmission Date: 20110411
  Serious: Yes (Death, Hospitalization)
  Sender: FDA-Public Use
  Company Number: US-BIOGENIDEC-2010BI036669

PATIENT
  Age: 59 Year
  Sex: Female

DRUGS (1)
  1. AVONEX [Suspect]
     Indication: MULTIPLE SCLEROSIS
     Route: 030
     Dates: start: 20090101

REACTIONS (6)
  - DEATH [None]
  - DECUBITUS ULCER [None]
  - DEPRESSION [None]
  - DYSSTASIA [None]
  - INFECTED SKIN ULCER [None]
  - WEIGHT DECREASED [None]
